FAERS Safety Report 19332006 (Version 1)
Quarter: 2021Q2

REPORT INFORMATION
  Report Type: Spontaneous
  Country: US (occurrence: US)
  Receive Date: 20210529
  Receipt Date: 20210529
  Transmission Date: 20210717
  Serious: No
  Sender: FDA-Public Use
  Company Number: US-AMGEN-USASP2021081942

PATIENT
  Age: 39 Year
  Sex: Female

DRUGS (24)
  1. HYDROXYZINE HCL [Concomitant]
     Active Substance: HYDROXYZINE HYDROCHLORIDE
  2. VITAMIN D NOS [Concomitant]
     Active Substance: VITAMIN D NOS
  3. LIDOCAINE. [Concomitant]
     Active Substance: LIDOCAINE
  4. VENLAFAXINE [Concomitant]
     Active Substance: VENLAFAXINE HYDROCHLORIDE
  5. BENZONATATE. [Concomitant]
     Active Substance: BENZONATATE
  6. OTEZLA [Suspect]
     Active Substance: APREMILAST
     Indication: PSORIASIS
     Dosage: 30 MILLIGRAM, BID
     Route: 048
     Dates: start: 20210305
  7. MIRTAZAPINE. [Concomitant]
     Active Substance: MIRTAZAPINE
  8. MELOXICAM. [Concomitant]
     Active Substance: MELOXICAM
  9. EMGALITY [Concomitant]
     Active Substance: GALCANEZUMAB-GNLM
  10. CYANOCOBALAMIN. [Concomitant]
     Active Substance: CYANOCOBALAMIN
  11. OMEPRAZOLE. [Concomitant]
     Active Substance: OMEPRAZOLE
  12. SUCRALFATE. [Concomitant]
     Active Substance: SUCRALFATE
  13. METFORMIN [Concomitant]
     Active Substance: METFORMIN HYDROCHLORIDE
  14. FAMOTIDINE. [Concomitant]
     Active Substance: FAMOTIDINE
  15. RIZATRIPTAN. [Concomitant]
     Active Substance: RIZATRIPTAN
  16. NABUMETONE. [Concomitant]
     Active Substance: NABUMETONE
  17. NYSTATIN. [Concomitant]
     Active Substance: NYSTATIN
  18. FLUCONAZOLE. [Concomitant]
     Active Substance: FLUCONAZOLE
  19. HYDROCHLOROTH [Concomitant]
     Active Substance: HYDROCHLOROTHIAZIDE
  20. BUSPIRONE [Concomitant]
     Active Substance: BUSPIRONE HYDROCHLORIDE
  21. PROPRANOL [Concomitant]
     Active Substance: PROPRANOLOL HYDROCHLORIDE
  22. ESCITALOPRAM [Concomitant]
     Active Substance: ESCITALOPRAM OXALATE
  23. DICLOFENAC [Concomitant]
     Active Substance: DICLOFENAC
  24. CEFDINIR. [Concomitant]
     Active Substance: CEFDINIR

REACTIONS (2)
  - Vomiting [Not Recovered/Not Resolved]
  - Psoriasis [Not Recovered/Not Resolved]

NARRATIVE: CASE EVENT DATE: 20210525
